FAERS Safety Report 4832315-7 (Version None)
Quarter: 2005Q4

REPORT INFORMATION
  Report Type: 
  Country: None (occurrence: None)
  Receive Date: 20051116
  Receipt Date: 20051116
  Transmission Date: 20060501
  Serious: Yes (Hospitalization)
  Sender: FDA-Public Use
  Company Number: None

PATIENT
  Age: 90 Year
  Sex: Female
  Weight: 47.6 kg

DRUGS (2)
  1. AVASTIN [Suspect]
     Indication: DISEASE RECURRENCE
     Dosage: 475 MG 1 TIME 041
     Dates: start: 20051004
  2. AVASTIN [Suspect]
     Indication: OVARIAN CANCER
     Dosage: 475 MG 1 TIME 041
     Dates: start: 20051004

REACTIONS (5)
  - ASTHENIA [None]
  - COMA [None]
  - DECREASED APPETITE [None]
  - GENERAL PHYSICAL HEALTH DETERIORATION [None]
  - PYREXIA [None]
